FAERS Safety Report 8581300-0 (Version None)
Quarter: 2012Q3

REPORT INFORMATION
  Report Type: 
  Country: None (occurrence: None)
  Receive Date: 20120727
  Receipt Date: 20120625
  Transmission Date: 20120928
  Serious: Yes (Death)
  Sender: FDA-Public Use
  Company Number: 1330932

PATIENT
  Sex: Male

DRUGS (1)
  1. MAGNESIUM SULFATE [Suspect]
     Dates: start: 20120623, end: 20120624

REACTIONS (2)
  - MATERNAL DRUGS AFFECTING FOETUS [None]
  - FOETAL DEATH [None]
